FAERS Safety Report 7949559-8 (Version None)
Quarter: 2011Q4

REPORT INFORMATION
  Report Type: 
  Country: None (occurrence: None)
  Receive Date: 20111130
  Receipt Date: 20111110
  Transmission Date: 20120403
  Serious: Yes (Other)
  Sender: FDA-Public Use
  Company Number: DE-ABBOTT-11P-062-0834422-00

PATIENT
  Sex: Male

DRUGS (6)
  1. VALSARTAN [Concomitant]
     Indication: PRODUCT USED FOR UNKNOWN INDICATION
  2. TESTOSTERONE [Suspect]
     Indication: PITUITARY TUMOUR
     Dosage: 1 IN 1 DAY, GEL
     Route: 062
     Dates: start: 20010101
  3. TESTOSTERONE [Suspect]
     Indication: HYPOPITUITARISM
  4. MARCUMAR [Concomitant]
     Indication: PRODUCT USED FOR UNKNOWN INDICATION
  5. METOPROLOL TARTRATE [Concomitant]
     Indication: PRODUCT USED FOR UNKNOWN INDICATION
  6. LEVOTHYROXINE SODIUM [Concomitant]
     Indication: PRODUCT USED FOR UNKNOWN INDICATION

REACTIONS (2)
  - CEREBRAL ARTERY EMBOLISM [None]
  - POLYCYTHAEMIA [None]
